FAERS Safety Report 13052170 (Version 1)
Quarter: 2016Q4

REPORT INFORMATION
  Report Type: Spontaneous
  Country: CH (occurrence: CH)
  Receive Date: 20161221
  Receipt Date: 20161221
  Transmission Date: 20170207
  Serious: Yes (Hospitalization)
  Sender: FDA-Public Use
  Company Number: CH-TEVA-721119ISR

PATIENT
  Age: 84 Year
  Sex: Male
  Weight: 71 kg

DRUGS (9)
  1. PANTOZOL [Concomitant]
     Active Substance: PANTOPRAZOLE SODIUM
     Dosage: 20 MILLIGRAM DAILY; ENTERIC COATED TABLET
     Route: 048
  2. TENORMIN [Concomitant]
     Active Substance: ATENOLOL
     Dosage: 50 MILLIGRAM DAILY; STRENGTH: 50MG
     Route: 048
  3. CO-AMOXI MEPHA 625 LACTAB [Suspect]
     Active Substance: AMOXICILLIN\CLAVULANIC ACID
     Indication: URINARY TRACT INFECTION BACTERIAL
     Dosage: 1875 MILLIGRAM DAILY; STRENGTH: 125MG/500MG
     Route: 048
     Dates: start: 20161101, end: 20161114
  4. LASIX [Concomitant]
     Active Substance: FUROSEMIDE
     Dosage: 20 MILLIGRAM DAILY;
     Route: 048
  5. MADOPAR [Concomitant]
     Active Substance: BENSERAZIDE HYDROCHLORIDE\LEVODOPA
     Dosage: 1000 MILLIGRAM DAILY; STRENGTH: 200MG/50MG, ADD ONE TABLET IN THE EVENING
     Route: 048
  6. NEUPRO [Concomitant]
     Active Substance: ROTIGOTINE
     Dosage: 6 MILLIGRAM DAILY; MEDICATED DRESSING, STRENGTH UNSPECIFIED
     Route: 062
  7. ATACAND PLUS [Concomitant]
     Active Substance: CANDESARTAN CILEXETIL\HYDROCHLOROTHIAZIDE
     Dosage: 1 DOSAGE FORMS DAILY; STRENGTH: 12.5MG/8MG
     Route: 048
  8. PLAVIX [Concomitant]
     Active Substance: CLOPIDOGREL BISULFATE
     Dosage: 75 MILLIGRAM DAILY;
     Route: 048
  9. SIMCORA [Concomitant]
     Active Substance: SIMVASTATIN
     Dosage: 20 MILLIGRAM DAILY; LAYERED TABLET
     Route: 048

REACTIONS (4)
  - Aggression [Recovering/Resolving]
  - Altered state of consciousness [Recovering/Resolving]
  - Generalised tonic-clonic seizure [Recovering/Resolving]
  - Psychomotor hyperactivity [Recovering/Resolving]

NARRATIVE: CASE EVENT DATE: 20161114
